FAERS Safety Report 9900401 (Version 1)
Quarter: 2014Q1

REPORT INFORMATION
  Report Type: Spontaneous
  Country: US (occurrence: US)
  Receive Date: 20140217
  Receipt Date: 20140217
  Transmission Date: 20141002
  Serious: No
  Sender: FDA-Public Use
  Company Number: US-009507513-1402USA001694

PATIENT
  Age: 16 Year
  Sex: Female
  Weight: 43.99 kg

DRUGS (1)
  1. NEXPLANON [Suspect]
     Dosage: INSERT LEFT ARM, EVERY 3 YEARS
     Route: 059
     Dates: start: 20120522

REACTIONS (1)
  - Polymenorrhoea [Unknown]
